FAERS Safety Report 19987772 (Version 2)
Quarter: 2021Q4

REPORT INFORMATION
  Report Type: Spontaneous
  Country: IN (occurrence: IN)
  Receive Date: 20211022
  Receipt Date: 20211028
  Transmission Date: 20220303
  Serious: Yes (Death, Hospitalization)
  Sender: FDA-Public Use
  Company Number: IN-PFIZER INC-2020205216

PATIENT
  Age: 74 Year
  Sex: Female

DRUGS (1)
  1. CRIZOTINIB [Suspect]
     Active Substance: CRIZOTINIB
     Indication: Lung neoplasm malignant
     Dosage: 250 MG, 2X/DAY
     Route: 048
     Dates: start: 20170723, end: 20211004

REACTIONS (5)
  - Dyspnoea [Fatal]
  - Fatigue [Unknown]
  - Malaise [Unknown]
  - Neck pain [Unknown]
  - Pain [Unknown]
